FAERS Safety Report 13333968 (Version 1)
Quarter: 2017Q1

REPORT INFORMATION
  Report Type: Spontaneous
  Country: SE (occurrence: SE)
  Receive Date: 20170314
  Receipt Date: 20170314
  Transmission Date: 20170428
  Serious: Yes (Other)
  Sender: FDA-Public Use
  Company Number: SE-ELI_LILLY_AND_COMPANY-SE201703003627

PATIENT
  Age: 79 Year
  Sex: Male

DRUGS (4)
  1. ALFUZOSIN [Concomitant]
     Active Substance: ALFUZOSIN
     Dosage: UNK, UNKNOWN
     Route: 065
     Dates: start: 20151127
  2. MEMANTINE. [Concomitant]
     Active Substance: MEMANTINE
     Dosage: UNK, UNKNOWN
     Route: 065
     Dates: start: 20150202
  3. CYMBALTA [Suspect]
     Active Substance: DULOXETINE HYDROCHLORIDE
     Dosage: 30 MG, QD
     Route: 048
     Dates: start: 20161213, end: 20161220
  4. CYMBALTA [Suspect]
     Active Substance: DULOXETINE HYDROCHLORIDE
     Indication: DEPRESSION
     Dosage: 60 MG, UNKNOWN
     Route: 065
     Dates: end: 20160406

REACTIONS (2)
  - Visual acuity reduced [Recovered/Resolved]
  - Micturition disorder [Unknown]

NARRATIVE: CASE EVENT DATE: 20161220
